FAERS Safety Report 6971100-7 (Version None)
Quarter: 2010Q3

REPORT INFORMATION
  Report Type: 
  Country: None (occurrence: None)
  Receive Date: 20100903
  Receipt Date: 20100827
  Transmission Date: 20110219
  Serious: Yes (Disabling)
  Sender: FDA-Public Use
  Company Number: 2010SP046463

PATIENT
  Age: 62 Year
  Sex: Female

DRUGS (10)
  1. CELESTAMINE TAB [Suspect]
     Indication: NASOPHARYNGITIS
     Dosage: 1 DF;TID;PO
     Route: 048
     Dates: start: 20100604, end: 20100606
  2. MUCODYNE [Concomitant]
  3. HUSCODE [Concomitant]
  4. FLOMOX [Concomitant]
  5. NIFLAN [Concomitant]
  6. ZETIA [Concomitant]
  7. MERCAZOLE [Concomitant]
  8. THYRADIN-S [Concomitant]
  9. NOXTAL [Concomitant]
  10. AZUNOL (SODIUM GUALENATE HYDRATE) [Concomitant]

REACTIONS (1)
  - PAROSMIA [None]
